FAERS Safety Report 21585429 (Version 2)
Quarter: 2023Q1

REPORT INFORMATION
  Report Type: Spontaneous
  Country: JP (occurrence: JP)
  Receive Date: 20221111
  Receipt Date: 20230213
  Transmission Date: 20230418
  Serious: Yes (Hospitalization, Other)
  Sender: FDA-Public Use
  Company Number: JP-ONO-2022JP030243

PATIENT

DRUGS (1)
  1. OPDIVO [Suspect]
     Active Substance: NIVOLUMAB
     Indication: Gastric cancer
     Dosage: UNK
     Route: 041
     Dates: start: 20220118

REACTIONS (3)
  - Septic shock [Unknown]
  - Escherichia infection [Unknown]
  - Immune-mediated cholangitis [Recovering/Resolving]

NARRATIVE: CASE EVENT DATE: 20220324
